FAERS Safety Report 4488711-3 (Version None)
Quarter: 2004Q4

REPORT INFORMATION
  Report Type: 
  Country: None (occurrence: None)
  Receive Date: 20041025
  Receipt Date: 20041012
  Transmission Date: 20050328
  Serious: Yes (Other)
  Sender: FDA-Public Use
  Company Number: 2004080302

PATIENT
  Age: 11 Year
  Sex: Male

DRUGS (2)
  1. ZELDOX (CAPSULES) (ZIPRASIDONE) [Suspect]
     Indication: ILL-DEFINED DISORDER
     Dosage: 80 MG (1 IN 1 D) ORAL
     Route: 048
  2. VALPROATE SODIUM [Concomitant]

REACTIONS (1)
  - HYPERTENSIVE CRISIS [None]
